FAERS Safety Report 23722557 (Version 1)
Quarter: 2024Q2

REPORT INFORMATION
  Report Type: Report from Study
  Country: US (occurrence: US)
  Receive Date: 20240409
  Receipt Date: 20240409
  Transmission Date: 20240716
  Serious: Yes (Hospitalization)
  Sender: FDA-Public Use
  Company Number: US-ALNYLAM PHARMACEUTICALS, INC.-ALN-2024-001900

PATIENT

DRUGS (2)
  1. OXLUMO [Suspect]
     Active Substance: LUMASIRAN
     Indication: Primary hyperoxaluria
     Dosage: UNK
     Route: 065
     Dates: start: 20210514, end: 20210514
  2. OXLUMO [Suspect]
     Active Substance: LUMASIRAN
     Dosage: UNK
     Route: 065
     Dates: start: 20240331, end: 20240331

REACTIONS (1)
  - Ill-defined disorder [Unknown]
